FAERS Safety Report 5121045-2 (Version None)
Quarter: 2006Q4

REPORT INFORMATION
  Report Type: 
  Country: None (occurrence: None)
  Receive Date: 20061005
  Receipt Date: 20060926
  Transmission Date: 20070319
  Serious: Yes (Hospitalization)
  Sender: FDA-Public Use
  Company Number: 2006CG01597

PATIENT
  Sex: Female

DRUGS (1)
  1. ENTOCORT [Suspect]
     Route: 048

REACTIONS (1)
  - PANCREATITIS ACUTE [None]
